FAERS Safety Report 6761319-2 (Version None)
Quarter: 2010Q2

REPORT INFORMATION
  Report Type: 
  Country: None (occurrence: None)
  Receive Date: 20100608
  Receipt Date: 20100506
  Transmission Date: 20101027
  Serious: Yes (Other)
  Sender: FDA-Public Use
  Company Number: PHHY2010ES11509

PATIENT
  Sex: Female

DRUGS (4)
  1. CERTICAN [Suspect]
     Dosage: UNK
  2. BLEOMYCIN [Concomitant]
     Indication: HODGKIN'S DISEASE
     Dosage: UNK
  3. CYCLOSPORINE [Concomitant]
     Indication: TRANSPLANT
  4. PREDNISONE [Concomitant]

REACTIONS (5)
  - DIALYSIS [None]
  - DRUG INTERACTION [None]
  - DRUG LEVEL INCREASED [None]
  - HODGKIN'S DISEASE [None]
  - RENAL FAILURE [None]
